FAERS Safety Report 20064158 (Version 1)
Quarter: 2021Q4

REPORT INFORMATION
  Report Type: Other
  Country: US (occurrence: US)
  Receive Date: 20211112
  Receipt Date: 20211112
  Transmission Date: 20220303
  Serious: Yes (Death)
  Sender: FDA-Public Use
  Company Number: US-MACROGENICS-2021000292

PATIENT
  Age: 70 Year
  Sex: Female

DRUGS (1)
  1. MARGENZA [Suspect]
     Active Substance: MARGETUXIMAB-CMKB
     Indication: Product used for unknown indication
     Route: 065

REACTIONS (1)
  - Death [Fatal]

NARRATIVE: CASE EVENT DATE: 20210814
